APPROVED DRUG PRODUCT: GUANFACINE HYDROCHLORIDE
Active Ingredient: GUANFACINE HYDROCHLORIDE
Strength: EQ 2MG BASE
Dosage Form/Route: TABLET, EXTENDED RELEASE;ORAL
Application: A219033 | Product #002 | TE Code: AB
Applicant: UNICHEM LABORATORIES LTD
Approved: Nov 19, 2024 | RLD: No | RS: No | Type: RX